FAERS Safety Report 22137962 (Version 5)
Quarter: 2023Q2

REPORT INFORMATION
  Report Type: Spontaneous
  Country: US (occurrence: US)
  Receive Date: 20230325
  Receipt Date: 20230509
  Transmission Date: 20230721
  Serious: No
  Sender: FDA-Public Use
  Company Number: US-UNITED THERAPEUTICS-UNT-2023-006349

PATIENT
  Age: 59 Year
  Sex: Female
  Weight: 67.574 kg

DRUGS (5)
  1. REMODULIN [Suspect]
     Active Substance: TREPROSTINIL
     Indication: Pulmonary arterial hypertension
     Dosage: 0.163 ?G/KG, CONTINUING
     Route: 058
  2. REMODULIN [Suspect]
     Active Substance: TREPROSTINIL
     Dosage: 0.158 ?G/KG, CONTINUING
     Route: 058
  3. REMODULIN [Suspect]
     Active Substance: TREPROSTINIL
     Dosage: UNK, CONTINUING
     Route: 058
     Dates: start: 20210902
  4. ADEMPAS [Suspect]
     Active Substance: RIOCIGUAT
     Indication: Product used for unknown indication
     Dosage: UNK, TID (0.5 MG IN MORNING, 0.25 MG IN AFTERNOON AND EVENING)
     Route: 065
  5. ADEMPAS [Suspect]
     Active Substance: RIOCIGUAT
     Dosage: 1 MG, TID
     Route: 065
     Dates: start: 20230415

REACTIONS (17)
  - SARS-CoV-2 test positive [Unknown]
  - Blood pressure abnormal [Unknown]
  - Dizziness [Unknown]
  - Illness [Unknown]
  - Anaemia [Recovered/Resolved]
  - Upper respiratory tract infection [Unknown]
  - Haemoptysis [Unknown]
  - Abdominal discomfort [Unknown]
  - Joint swelling [Recovered/Resolved]
  - Oedema peripheral [Not Recovered/Not Resolved]
  - Sinus disorder [Unknown]
  - Epistaxis [Unknown]
  - Seasonal allergy [Unknown]
  - Hypotension [Unknown]
  - Hot flush [Not Recovered/Not Resolved]
  - Blood pressure systolic decreased [Not Recovered/Not Resolved]
  - Dehydration [Unknown]

NARRATIVE: CASE EVENT DATE: 20230201
